FAERS Safety Report 20309386 (Version 1)
Quarter: 2022Q1

REPORT INFORMATION
  Report Type: Spontaneous
  Country: GB (occurrence: GB)
  Receive Date: 20220107
  Receipt Date: 20220107
  Transmission Date: 20220423
  Serious: No
  Sender: FDA-Public Use
  Company Number: GB-PFIZER INC-202101263616

PATIENT
  Age: 27 Year
  Sex: Female

DRUGS (1)
  1. GENOTROPIN [Suspect]
     Active Substance: SOMATROPIN
     Indication: Growth hormone deficiency
     Dosage: 0.8 MG, DAILY
     Route: 058

REACTIONS (2)
  - Drug delivery system issue [Unknown]
  - Drug dose omission by device [Unknown]
